FAERS Safety Report 11461752 (Version 1)
Quarter: 2015Q3

REPORT INFORMATION
  Report Type: Spontaneous
  Country: US (occurrence: US)
  Receive Date: 20150831
  Receipt Date: 20150831
  Transmission Date: 20151125
  Serious: No
  Sender: FDA-Public Use
  Company Number: US-ELI_LILLY_AND_COMPANY-US200908002891

PATIENT
  Sex: Female

DRUGS (1)
  1. CYMBALTA [Suspect]
     Active Substance: DULOXETINE HYDROCHLORIDE
     Indication: DEPRESSION
     Dosage: 60 MG, DAILY (1/D)
     Dates: start: 2005

REACTIONS (8)
  - Urinary retention [Not Recovered/Not Resolved]
  - Parkinsonism [Not Recovered/Not Resolved]
  - Tremor [Recovered/Resolved]
  - Bladder prolapse [Not Recovered/Not Resolved]
  - Hypotension [Not Recovered/Not Resolved]
  - Hypertension [Not Recovered/Not Resolved]
  - Drooling [Recovered/Resolved]
  - Urinary incontinence [Not Recovered/Not Resolved]

NARRATIVE: CASE EVENT DATE: 2007
